FAERS Safety Report 10486727 (Version 6)
Quarter: 2015Q1

REPORT INFORMATION
  Report Type: Report from Study
  Country: CA (occurrence: CA)
  Receive Date: 20141001
  Receipt Date: 20150216
  Transmission Date: 20150720
  Serious: Yes (Death, Hospitalization, Other)
  Sender: FDA-Public Use
  Company Number: CA-BAYER-2014-101398

PATIENT
  Age: 74 Year
  Sex: Male

DRUGS (7)
  1. STIVARGA [Suspect]
     Active Substance: REGORAFENIB
     Indication: COLORECTAL CANCER METASTATIC
     Dosage: 160 MG, QD
     Route: 048
     Dates: start: 20140626, end: 20141001
  2. STIVARGA [Suspect]
     Active Substance: REGORAFENIB
     Indication: COLORECTAL CANCER METASTATIC
     Dosage: 160 MG, OD
     Route: 048
     Dates: start: 20141017
  3. NEUPOGEN [Concomitant]
     Active Substance: FILGRASTIM
     Dosage: AS DIRECTED
  4. RAMIPRIL. [Concomitant]
     Active Substance: RAMIPRIL
     Dosage: 2.5 MG, OD
  5. ATORVASTATIN [Concomitant]
     Active Substance: ATORVASTATIN
     Dosage: 20 MG, OD
  6. PANTOPRAZOLE [Concomitant]
     Active Substance: PANTOPRAZOLE SODIUM
     Dosage: 40 MG, OD
  7. ASA [Concomitant]
     Active Substance: ASPIRIN
     Dosage: 81 MG, OD

REACTIONS (15)
  - Chest pain [Not Recovered/Not Resolved]
  - Fatigue [None]
  - Nausea [Recovering/Resolving]
  - Vomiting [Recovering/Resolving]
  - Musculoskeletal pain [None]
  - Hiccups [Not Recovered/Not Resolved]
  - Chest discomfort [Unknown]
  - Diarrhoea [None]
  - Malaise [Not Recovered/Not Resolved]
  - Colon cancer [Fatal]
  - Chest pain [Unknown]
  - Decreased appetite [Not Recovered/Not Resolved]
  - Chromaturia [Not Recovered/Not Resolved]
  - Dysphagia [Not Recovered/Not Resolved]
  - Constipation [Unknown]

NARRATIVE: CASE EVENT DATE: 2014
